FAERS Safety Report 12158364 (Version 1)
Quarter: 2016Q1

REPORT INFORMATION
  Report Type: Spontaneous
  Country: US (occurrence: US)
  Receive Date: 20160308
  Receipt Date: 20160308
  Transmission Date: 20160526
  Serious: No
  Sender: FDA-Public Use
  Company Number: US-JNJFOC-20150211515

PATIENT
  Age: 97 Year
  Sex: Female
  Weight: 64 kg

DRUGS (4)
  1. IMBRUVICA [Suspect]
     Active Substance: IBRUTINIB
     Indication: CHRONIC LYMPHOCYTIC LEUKAEMIA
     Route: 048
     Dates: start: 20150130, end: 20150212
  2. ONDANSETRON [Concomitant]
     Active Substance: ONDANSETRON
  3. PANTOPRAZOLE [Concomitant]
     Active Substance: PANTOPRAZOLE SODIUM
  4. TOPROL XL [Concomitant]
     Active Substance: METOPROLOL SUCCINATE

REACTIONS (8)
  - Feeling abnormal [Unknown]
  - White blood cell count increased [Unknown]
  - Platelet count decreased [Unknown]
  - Decreased appetite [Not Recovered/Not Resolved]
  - Blood blister [Not Recovered/Not Resolved]
  - Oral pain [Not Recovered/Not Resolved]
  - Urinary tract infection [Unknown]
  - Disease progression [Unknown]

NARRATIVE: CASE EVENT DATE: 2015
